FAERS Safety Report 13785928 (Version 1)
Quarter: 2017Q3

REPORT INFORMATION
  Report Type: Spontaneous
  Country: BR (occurrence: BR)
  Receive Date: 20170725
  Receipt Date: 20170725
  Transmission Date: 20171127
  Serious: Yes (Other)
  Sender: FDA-Public Use
  Company Number: BR-BAXTER-2017BAX028517

PATIENT

DRUGS (2)
  1. SEVONESS [Suspect]
     Active Substance: SEVOFLURANE
     Dosage: SEVOFLURANE WAS FLOWING INSTED OF OXYGEN FROM OXYGEN MASK
     Route: 055
  2. SEVONESS [Suspect]
     Active Substance: SEVOFLURANE
     Indication: PRODUCT USED FOR UNKNOWN INDICATION
     Dosage: SEVOFLURANE FROM THE VAPORIZER
     Route: 055

REACTIONS (2)
  - Drug administration error [Unknown]
  - Anaesthetic complication [Unknown]
